FAERS Safety Report 7218393-9 (Version None)
Quarter: 2011Q1

REPORT INFORMATION
  Report Type: 
  Country: None (occurrence: None)
  Receive Date: 20110110
  Receipt Date: 20101221
  Transmission Date: 20110831
  Serious: No
  Sender: FDA-Public Use
  Company Number: US-B.I. PHARMACEUTICALS,INC./RIDGEFIELD-2010-BP-15251BP

PATIENT
  Age: 83 Year
  Sex: Female

DRUGS (2)
  1. COMBIVENT [Concomitant]
     Indication: EMPHYSEMA
     Route: 055
  2. PRADAXA [Suspect]
     Indication: ATRIAL FIBRILLATION
     Dosage: 300 MG
     Route: 048
     Dates: start: 20101210, end: 20101219

REACTIONS (2)
  - RECTAL HAEMORRHAGE [None]
  - ABDOMINAL PAIN LOWER [None]
